FAERS Safety Report 20969229 (Version 1)
Quarter: 2022Q2

REPORT INFORMATION
  Report Type: Spontaneous
  Country: US (occurrence: US)
  Receive Date: 20220616
  Receipt Date: 20220616
  Transmission Date: 20220721
  Serious: No
  Sender: FDA-Public Use
  Company Number: US-SK LIFE SCIENCE, INC-SKPVG-2022-000146

PATIENT

DRUGS (6)
  1. XCOPRI [Suspect]
     Active Substance: CENOBAMATE
     Indication: Partial seizures
     Dosage: 12.5 MILLIGRAM
     Route: 048
     Dates: start: 20220226, end: 20220311
  2. XCOPRI [Suspect]
     Active Substance: CENOBAMATE
     Dosage: 25 MILLIGRAM, QD IN THE EVENING
     Route: 048
     Dates: start: 20220312, end: 20220312
  3. PRIMIDONE [Suspect]
     Active Substance: PRIMIDONE
     Indication: Seizure
     Dosage: 2.5 (50MG) 4 TIMES A DAY
     Route: 065
  4. PRIMIDONE [Suspect]
     Active Substance: PRIMIDONE
     Dosage: 3 M (3MID) 4 EVENING
     Route: 065
  5. PRIMIDONE [Suspect]
     Active Substance: PRIMIDONE
     Dosage: TOOK 2 MORE PRIMIDONE AWAY ONE AT NIGHT AND MORNING
     Route: 065
  6. MULTIVITAMINS                      /00116001/ [Concomitant]
     Indication: Product used for unknown indication
     Route: 065

REACTIONS (15)
  - Generalised tonic-clonic seizure [Recovered/Resolved]
  - Insomnia [Recovered/Resolved]
  - Flatulence [Not Recovered/Not Resolved]
  - Drug interaction [Unknown]
  - Gastrointestinal disorder [Unknown]
  - Blood urine present [Unknown]
  - Poor quality sleep [Unknown]
  - Ear discomfort [Unknown]
  - Aura [Unknown]
  - Feeling abnormal [Unknown]
  - Pain [Unknown]
  - Migraine [Unknown]
  - Somnolence [Recovered/Resolved]
  - Somnolence [Unknown]
  - Fatigue [Unknown]

NARRATIVE: CASE EVENT DATE: 20220227
